FAERS Safety Report 15618945 (Version 2)
Quarter: 2018Q4

REPORT INFORMATION
  Report Type: Spontaneous
  Country: FI (occurrence: FI)
  Receive Date: 20181114
  Receipt Date: 20181120
  Transmission Date: 20190205
  Serious: Yes (Hospitalization, Other)
  Sender: FDA-Public Use
  Company Number: FI-ELI_LILLY_AND_COMPANY-FI201811003098

PATIENT
  Age: 61 Year
  Sex: Male

DRUGS (6)
  1. SIMVASTATIN. [Concomitant]
     Active Substance: SIMVASTATIN
     Indication: PRODUCT USED FOR UNKNOWN INDICATION
     Dosage: 20 MG, DAILY
     Route: 065
  2. THYROXIN [Concomitant]
     Active Substance: LEVOTHYROXINE
     Indication: PRODUCT USED FOR UNKNOWN INDICATION
     Dosage: 25 UG, DAILY
     Route: 065
  3. DEPRAKINE VALPROATE SODIUM [Concomitant]
     Indication: PRODUCT USED FOR UNKNOWN INDICATION
     Dosage: 300 MG, DAILY
     Route: 065
  4. DEPRAKINE VALPROATE SODIUM [Concomitant]
     Dosage: 500 MG, BID
     Route: 065
  5. ZYPADHERA [Suspect]
     Active Substance: OLANZAPINE PAMOATE
     Indication: PRODUCT USED FOR UNKNOWN INDICATION
     Dosage: 300 MG, EVERY TWO WEEKS
     Route: 065
     Dates: start: 2014
  6. METFOREM [Concomitant]
     Active Substance: METFORMIN HYDROCHLORIDE
     Indication: PRODUCT USED FOR UNKNOWN INDICATION
     Dosage: 500 MG, BID
     Route: 065

REACTIONS (11)
  - Fall [Unknown]
  - Post-injection delirium sedation syndrome [Unknown]
  - Balance disorder [Unknown]
  - Heart rate increased [Unknown]
  - Speech disorder [Unknown]
  - Somnolence [Unknown]
  - Transient ischaemic attack [Unknown]
  - Hip fracture [Unknown]
  - Urinary tract infection [Unknown]
  - C-reactive protein increased [Unknown]
  - Restlessness [Unknown]

NARRATIVE: CASE EVENT DATE: 20181031
